FAERS Safety Report 10997965 (Version 1)
Quarter: 2015Q2

REPORT INFORMATION
  Report Type: Spontaneous
  Country: US (occurrence: US)
  Receive Date: 20150408
  Receipt Date: 20150408
  Transmission Date: 20150821
  Serious: No
  Sender: FDA-Public Use
  Company Number: US-BANPHARM-20153366

PATIENT
  Age: 71 Year
  Sex: Female
  Weight: 69.85 kg

DRUGS (2)
  1. ALEVE [Suspect]
     Active Substance: NAPROXEN SODIUM
     Indication: PAIN
     Dosage: 1 DF, BID,
     Route: 048
     Dates: start: 20150112, end: 20150113
  2. ALEVE [Suspect]
     Active Substance: NAPROXEN SODIUM
     Dosage: 1 DF, BID,
     Route: 048

REACTIONS (4)
  - Throat irritation [Unknown]
  - Dyspnoea [Recovered/Resolved]
  - Foreign body [Recovered/Resolved]
  - Expired product administered [Unknown]

NARRATIVE: CASE EVENT DATE: 20150107
